FAERS Safety Report 6684774-5 (Version None)
Quarter: 2010Q2

REPORT INFORMATION
  Report Type: 
  Country: None (occurrence: None)
  Receive Date: 20100416
  Receipt Date: 20100406
  Transmission Date: 20101027
  Serious: Yes (Hospitalization)
  Sender: FDA-Public Use
  Company Number: JP-WATSON-2010-04677

PATIENT
  Age: 68 Year
  Sex: Male

DRUGS (1)
  1. CYCLOSPORINE [Suspect]
     Indication: APLASTIC ANAEMIA
     Dosage: 5 MG/KG, 300 MG DAILY

REACTIONS (1)
  - CEREBRAL INFARCTION [None]
